FAERS Safety Report 4432661-5 (Version None)
Quarter: 2004Q3

REPORT INFORMATION
  Report Type: 
  Country: None (occurrence: None)
  Receive Date: 20040820
  Receipt Date: 20040809
  Transmission Date: 20050211
  Serious: Yes (Hospitalization)
  Sender: FDA-Public Use
  Company Number: 2004038812

PATIENT
  Age: 59 Year
  Sex: Male
  Weight: 93 kg

DRUGS (8)
  1. SERTRALINE HYDROCHLORIDE [Suspect]
     Indication: DEPRESSION
     Dosage: 300 MG (2 IN 1 D) ORAL
     Route: 048
  2. TIKOSYN [Suspect]
     Indication: ATRIAL FIBRILLATION
     Dosage: 1000 MCG (500 MCG, 2 IN 1 D) ORAL
     Route: 048
     Dates: start: 20040604
  3. GABAPENTIN [Concomitant]
  4. OXYCODONE HCL [Concomitant]
  5. SIMVASTATIN [Concomitant]
  6. TAMSULOSIN HYDROCHLORIDE [Concomitant]
  7. TRAZODONE [Concomitant]
  8. WARFARIN SODIUM [Concomitant]

REACTIONS (2)
  - PLATELET COUNT DECREASED [None]
  - WHITE BLOOD CELL COUNT DECREASED [None]
